FAERS Safety Report 19514598 (Version 2)
Quarter: 2021Q3

REPORT INFORMATION
  Report Type: Report from Study
  Country: BG (occurrence: BG)
  Receive Date: 20210709
  Receipt Date: 20210924
  Transmission Date: 20211014
  Serious: Yes (Hospitalization)
  Sender: FDA-Public Use
  Company Number: BG-PFIZER INC-2021792937

PATIENT

DRUGS (8)
  1. ANALGIN [METAMIZOLE SODIUM] [Concomitant]
     Dates: start: 20191015, end: 20200824
  2. DOCETAXEL. [Suspect]
     Active Substance: DOCETAXEL
     Dosage: 75 MG, EVERY 3 WEEKS
     Route: 042
     Dates: start: 20191031
  3. ZOLEDRONIC ACID [Suspect]
     Active Substance: ZOLEDRONIC ACID
     Indication: BREAST CANCER
     Dosage: 4 MG, EVERY 4 WEEK
     Route: 042
     Dates: start: 20191114
  4. TRAMADOL. [Concomitant]
     Active Substance: TRAMADOL
     Dates: start: 20200824
  5. ENALAPRIL [Concomitant]
     Active Substance: ENALAPRIL
     Dates: start: 20091215
  6. BINOCRIT [Concomitant]
     Active Substance: ERYTHROPOIETIN
     Indication: ANAEMIA
     Dates: start: 20200710, end: 20200710
  7. TRASTUZUMAB. [Suspect]
     Active Substance: TRASTUZUMAB
     Indication: BREAST CANCER
     Dosage: 450 MG; MOST RECENT DOSE PRIOR TO THE EVENT: 27/NOV/2019
     Route: 042
     Dates: start: 20191031, end: 20191031
  8. ZARZIO [Concomitant]
     Active Substance: FILGRASTIM
     Indication: LEUKOPENIA
     Dates: start: 20200709, end: 20200709

REACTIONS (2)
  - Anaemia [Recovered/Resolved with Sequelae]
  - Underdose [Unknown]

NARRATIVE: CASE EVENT DATE: 20200807
